FAERS Safety Report 8445520-8 (Version None)
Quarter: 2012Q2

REPORT INFORMATION
  Report Type: 
  Country: None (occurrence: None)
  Receive Date: 20120618
  Receipt Date: 20120608
  Transmission Date: 20120825
  Serious: Yes (Hospitalization, Other)
  Sender: FDA-Public Use
  Company Number: US-MERCK-1203USA00181

PATIENT
  Age: 58 Year
  Sex: Female

DRUGS (8)
  1. FOSAMAX PLUS D [Suspect]
     Route: 048
     Dates: start: 20100801
  2. FOSAMAX PLUS D [Suspect]
     Route: 048
     Dates: start: 20070101, end: 20080401
  3. FOSAMAX [Suspect]
     Indication: OSTEOPOROSIS
     Route: 048
     Dates: start: 20070101, end: 20100101
  4. FOSAMAX [Suspect]
     Route: 048
     Dates: start: 19990101
  5. FOSAMAX PLUS D [Suspect]
     Indication: OSTEOPOROSIS
     Route: 048
     Dates: start: 19990101
  6. ALENDRONATE SODIUM [Suspect]
     Route: 048
     Dates: start: 20100501, end: 20100701
  7. ALENDRONATE SODIUM [Suspect]
     Route: 048
     Dates: start: 20100701, end: 20100901
  8. ALENDRONATE SODIUM [Suspect]
     Route: 048
     Dates: start: 20100201, end: 20100501

REACTIONS (14)
  - FEMUR FRACTURE [None]
  - FALL [None]
  - HIP FRACTURE [None]
  - ULNA FRACTURE [None]
  - ANKLE FRACTURE [None]
  - HEAD INJURY [None]
  - LUMBAR VERTEBRAL FRACTURE [None]
  - MYOCARDIAL INFARCTION [None]
  - EXCORIATION [None]
  - FOOT FRACTURE [None]
  - HYPOCALCAEMIA [None]
  - ANAEMIA POSTOPERATIVE [None]
  - RADIUS FRACTURE [None]
  - GINGIVITIS [None]
